FAERS Safety Report 8816699 (Version 1)
Quarter: 2012Q4

REPORT INFORMATION
  Report Type: Spontaneous
  Country: US (occurrence: None)
  Receive Date: 20120928
  Receipt Date: 20120928
  Transmission Date: 20130627
  Serious: Yes (Hospitalization)
  Sender: FDA-Public Use
  Company Number: 139549

PATIENT
  Age: 55 Year
  Sex: Male

DRUGS (1)
  1. ADRIAMYCIN [Suspect]
     Indication: CARCINOMA HEPATOCELLULAR
     Dosage: 50mg in 100um to 300um beads

REACTIONS (11)
  - Oxygen saturation decreased [None]
  - Oral candidiasis [None]
  - Oedema [None]
  - Respiratory distress [None]
  - Haemoglobin decreased [None]
  - Platelet count decreased [None]
  - Blood sodium decreased [None]
  - Aspartate aminotransferase increased [None]
  - Alanine aminotransferase increased [None]
  - Blood alkaline phosphatase increased [None]
  - Acute lung injury [None]
